FAERS Safety Report 12729181 (Version 4)
Quarter: 2016Q4

REPORT INFORMATION
  Report Type: Report from Study
  Country: CA (occurrence: CA)
  Receive Date: 20160909
  Receipt Date: 20161004
  Transmission Date: 20170207
  Serious: Yes (Hospitalization, Other)
  Sender: FDA-Public Use
  Company Number: CA-JNJFOC-20160820322

PATIENT
  Age: 52 Year
  Sex: Male

DRUGS (1)
  1. IMBRUVICA [Suspect]
     Active Substance: IBRUTINIB
     Indication: CHRONIC LYMPHOCYTIC LEUKAEMIA
     Route: 048
     Dates: start: 20160809

REACTIONS (7)
  - Jaundice [Recovered/Resolved]
  - Blood uric acid increased [Unknown]
  - Lymphocyte count increased [Unknown]
  - Transfusion [Not Recovered/Not Resolved]
  - Asthenia [Recovered/Resolved]
  - Nasal congestion [Unknown]
  - Haemoglobin decreased [Recovering/Resolving]

NARRATIVE: CASE EVENT DATE: 20160824
